FAERS Safety Report 8715692 (Version 2)
Quarter: 2013Q1

REPORT INFORMATION
  Report Type: Report from Study
  Country: DE (occurrence: DE)
  Receive Date: 20120809
  Receipt Date: 20130206
  Transmission Date: 20140127
  Serious: Yes (Death, Hospitalization, Other)
  Sender: FDA-Public Use
  Company Number: DE-ABBOTT-10P-062-0689676-00

PATIENT
  Age: 85 Year
  Sex: Female
  Weight: 72 kg

DRUGS (4)
  1. HUMIRA 40 MG/ 0.8 ML PRE-FILLED SYRINGE [Suspect]
     Indication: RHEUMATOID ARTHRITIS
     Route: 058
     Dates: start: 20100223, end: 20101018
  2. HUMIRA 40 MG/ 0.8 ML PRE-FILLED SYRINGE [Suspect]
     Dates: start: 20101118, end: 201102
  3. METHOTREXATE [Suspect]
     Indication: RHEUMATOID ARTHRITIS
     Dosage: 10 MG
     Route: 048
     Dates: start: 199512, end: 201010
  4. PREDNISOLON [Concomitant]
     Indication: RHEUMATOID ARTHRITIS
     Dosage: 5 MG
     Route: 048
     Dates: start: 1998, end: 201102

REACTIONS (8)
  - Cholangiocarcinoma [Fatal]
  - Hepatic failure [Fatal]
  - Osteoporotic fracture [Unknown]
  - Cardiac failure [Unknown]
  - Atrial fibrillation [Unknown]
  - Sleep disorder [Unknown]
  - Vomiting [Unknown]
  - Urinary retention [Unknown]
